FAERS Safety Report 7827893-X (Version None)
Quarter: 2011Q4

REPORT INFORMATION
  Report Type: 
  Country: None (occurrence: None)
  Receive Date: 20111020
  Receipt Date: 20111017
  Transmission Date: 20120403
  Serious: No
  Sender: FDA-Public Use
  Company Number: US-B.I. PHARMACEUTICALS,INC./RIDGEFIELD-2011-BP-13262BP

PATIENT
  Sex: Female

DRUGS (12)
  1. LISINOPRIL [Concomitant]
     Indication: MITRAL VALVE DISEASE
     Route: 048
     Dates: start: 20101201
  2. M.V.I. [Concomitant]
     Indication: ROUTINE HEALTH MAINTENANCE
     Route: 048
  3. COREG [Concomitant]
     Indication: ATRIAL FIBRILLATION
     Route: 048
     Dates: start: 20110301
  4. VIT C [Concomitant]
     Indication: ROUTINE HEALTH MAINTENANCE
     Route: 048
  5. FISH OIL [Concomitant]
     Indication: ROUTINE HEALTH MAINTENANCE
     Route: 048
  6. SPIRIVA [Suspect]
     Indication: LUNG DISORDER
     Dosage: 18 MCG
     Route: 055
     Dates: start: 20110401
  7. PRADAXA [Concomitant]
     Indication: ANTICOAGULANT THERAPY
  8. VIT D [Concomitant]
     Indication: ROUTINE HEALTH MAINTENANCE
     Route: 048
  9. SPIRIVA [Suspect]
     Indication: CHEST EXPANSION DECREASED
  10. GINKO [Concomitant]
     Indication: ROUTINE HEALTH MAINTENANCE
     Route: 048
  11. LUTEIN [Concomitant]
     Indication: MACULAR DEGENERATION
     Route: 048
  12. PRADAXA [Concomitant]
     Indication: ATRIAL FIBRILLATION
     Dosage: 300 MG
     Route: 048
     Dates: start: 20110101

REACTIONS (2)
  - DRUG INEFFECTIVE [None]
  - ACCIDENTAL EXPOSURE [None]
